FAERS Safety Report 4961089-4 (Version None)
Quarter: 2006Q1

REPORT INFORMATION
  Report Type: 
  Country: None (occurrence: None)
  Receive Date: 20060327
  Receipt Date: 20060321
  Transmission Date: 20060701
  Serious: Yes (Death, Hospitalization)
  Sender: FDA-Public Use
  Company Number: 200610590BWH

PATIENT
  Age: 77 Year
  Sex: Male
  Weight: 70.3075 kg

DRUGS (2)
  1. NEXAVAR [Suspect]
     Indication: RENAL CELL CARCINOMA STAGE UNSPECIFIED
     Dosage: 400 MG, BID, ORAL
     Route: 048
     Dates: start: 20060103
  2. PAIN MED (NOS) [Concomitant]

REACTIONS (5)
  - ABASIA [None]
  - ASTHENIA [None]
  - DYSARTHRIA [None]
  - MUSCULAR WEAKNESS [None]
  - PARALYSIS [None]
